FAERS Safety Report 6167112-6 (Version None)
Quarter: 2009Q2

REPORT INFORMATION
  Report Type: 
  Country: None (occurrence: None)
  Receive Date: 20090423
  Receipt Date: 20090423
  Transmission Date: 20091009
  Serious: Yes (Hospitalization)
  Sender: FDA-Public Use
  Company Number: None

PATIENT
  Sex: Male
  Weight: 87.5 kg

DRUGS (4)
  1. FLUOROURACIL [Suspect]
     Dosage: 12465 MG
  2. BEVACIZUMAB (RHUMAB VEGF) [Suspect]
     Dosage: 950 MG
  3. LEUCOVORIN CALCIUM [Suspect]
     Dosage: 1765 MG
  4. ELOXATIN [Suspect]
     Dosage: 385 MG

REACTIONS (10)
  - BLOOD PRESSURE SYSTOLIC DECREASED [None]
  - CARDIAC ARREST [None]
  - DIARRHOEA [None]
  - HYPOTENSION [None]
  - NAUSEA [None]
  - ORAL PAIN [None]
  - PULSE ABSENT [None]
  - UNRESPONSIVE TO STIMULI [None]
  - VENTRICULAR TACHYCARDIA [None]
  - VOMITING [None]
